FAERS Safety Report 10706363 (Version 4)
Quarter: 2015Q1

REPORT INFORMATION
  Report Type: Spontaneous
  Country: JP (occurrence: None)
  Receive Date: 20150109
  Receipt Date: 20150310
  Transmission Date: 20150721
  Serious: Yes (Hospitalization)
  Sender: FDA-Public Use
  Company Number: 2014BCR01189

PATIENT
  Age: 91 Year
  Sex: Female

DRUGS (7)
  1. LAC-B (BIFIDOBACTERIUM) [Concomitant]
  2. YOUPIS (SODIUM PICOSULFATE HYDRATE) [Concomitant]
  3. RAPIACTA [Suspect]
     Active Substance: PERAMIVIR
     Indication: INFLUENZA
     Route: 042
     Dates: start: 20141222, end: 20141222
  4. TANNALBIN (ALBUMIN TANNATE) [Concomitant]
  5. TAKEPRON (LANSOPRAZOLE) [Concomitant]
     Active Substance: LANSOPRAZOLE
  6. INCREMIN (FERRIC PYROPHOSPHATE, SOLUBLE) [Concomitant]
  7. VITAMIN E AND PREPARATIONS (VITAMIN E AND PREPARATIONS) [Concomitant]

REACTIONS (10)
  - Protein total decreased [None]
  - Bedridden [None]
  - Blood creatinine increased [None]
  - X-ray abnormal [None]
  - Haemoglobin decreased [None]
  - Prescribed overdose [None]
  - Blood albumin decreased [None]
  - Asthma [None]
  - Renal impairment [None]
  - White blood cell count decreased [None]

NARRATIVE: CASE EVENT DATE: 20141223
